FAERS Safety Report 4787959-8 (Version None)
Quarter: 2005Q3

REPORT INFORMATION
  Report Type: 
  Country: None (occurrence: None)
  Receive Date: 20050926
  Receipt Date: 20041210
  Transmission Date: 20060218
  Serious: Yes (Hospitalization)
  Sender: FDA-Public Use
  Company Number: US-JNJFOC-20040802637

PATIENT
  Age: 26 Year
  Sex: Female

DRUGS (3)
  1. ORTHO NOVUM 0.5/50 21 TAB [Suspect]
     Indication: CONTRACEPTION
     Dosage: 1 DOSE(S), 1 IN 1 DAY, ORAL
     Route: 048
     Dates: start: 19790101, end: 19860203
  2. ALKA SELTZER PLUS COLD (ALKA-SELTZER PLUS) TABLETS [Suspect]
     Indication: SINUS DISORDER
     Dosage: ORAL
     Route: 048
     Dates: start: 19860127, end: 19860127
  3. BC COLD, ALLERGY AND SINUS (COTYLENOL) [Suspect]
     Indication: DRUG USE FOR UNKNOWN INDICATION

REACTIONS (3)
  - CEREBROVASCULAR ACCIDENT [None]
  - DENTAL CARIES [None]
  - URINARY TRACT INFECTION [None]
